FAERS Safety Report 11196926 (Version 2)
Quarter: 2015Q4

REPORT INFORMATION
  Report Type: Spontaneous
  Country: US (occurrence: US)
  Receive Date: 20150617
  Receipt Date: 20151116
  Transmission Date: 20160304
  Serious: Yes (Hospitalization)
  Sender: FDA-Public Use
  Company Number: US-BAYER-2015-355099

PATIENT
  Age: 24 Year
  Sex: Female
  Weight: 158.73 kg

DRUGS (2)
  1. MIRENA [Suspect]
     Active Substance: LEVONORGESTREL
     Indication: CONTRACEPTION
     Dosage: 20 MCG/24HR, CONT
     Route: 015
     Dates: start: 20100810, end: 201109
  2. MIRENA [Suspect]
     Active Substance: LEVONORGESTREL
     Indication: CONTRACEPTION
     Dosage: 20 MCG/24HR, CONT
     Route: 015
     Dates: start: 20100913, end: 20120612

REACTIONS (6)
  - Pain [None]
  - Device use error [None]
  - Procedural pain [Not Recovered/Not Resolved]
  - Uterine perforation [None]
  - Injury [None]
  - Device issue [None]

NARRATIVE: CASE EVENT DATE: 201009
